FAERS Safety Report 5537503-2 (Version None)
Quarter: 2007Q4

REPORT INFORMATION
  Report Type: 
  Country: None (occurrence: None)
  Receive Date: 20071207
  Receipt Date: 20071130
  Transmission Date: 20080405
  Serious: Yes (Hospitalization)
  Sender: FDA-Public Use
  Company Number: US-ELI_LILLY_AND_COMPANY-US200710006759

PATIENT
  Sex: Male

DRUGS (15)
  1. BYETTA [Suspect]
     Dosage: 5 UG, 2/D
     Route: 058
     Dates: start: 20050101, end: 20050101
  2. BYETTA [Suspect]
     Dosage: 10 UG, 2/D
     Route: 058
     Dates: start: 20050101, end: 20070202
  3. BYETTA [Suspect]
     Dosage: 10 UG, 2/D
     Route: 058
     Dates: start: 20071016
  4. BYETTA [Suspect]
     Dosage: 10 UG, 2/D
     Route: 058
     Dates: start: 20071016
  5. GLIPIZIDE [Concomitant]
     Dosage: 5 MG, UNKNOWN
     Route: 048
     Dates: end: 20070202
  6. GLIPIZIDE [Concomitant]
     Dosage: UNK, UNKNOWN
     Dates: start: 20071016
  7. METFORMIN HCL [Concomitant]
     Indication: DIABETES MELLITUS
     Dosage: 500 MG, UNKNOWN
     Route: 048
     Dates: end: 20070202
  8. METFORMIN HCL [Concomitant]
     Dosage: UNK, UNKNOWN
     Dates: start: 20071016
  9. LEVEMIR [Concomitant]
     Dosage: UNK, UNKNOWN
     Dates: start: 20070201, end: 20071016
  10. NOVOLOG [Concomitant]
     Dosage: UNK, UNKNOWN
     Dates: start: 20070201, end: 20071016
  11. AVAPRO [Concomitant]
     Indication: HYPERTENSION
     Dosage: 150 MG, UNKNOWN
     Route: 048
  12. TRICOR [Concomitant]
     Indication: HYPERLIPIDAEMIA
     Dosage: 145 UG, UNKNOWN
     Route: 048
  13. ASPIRIN [Concomitant]
     Indication: CORONARY ARTERY DISEASE
     Dosage: UNK, UNKNOWN
     Route: 048
  14. MAGNESIUM OXIDE [Concomitant]
     Dosage: UNK, UNKNOWN
     Route: 048
  15. CENTRUM SILVER [Concomitant]
     Dosage: UNK, UNKNOWN
     Route: 048

REACTIONS (1)
  - ACUTE MYOCARDIAL INFARCTION [None]
